FAERS Safety Report 9912822 (Version 1)
Quarter: 2014Q1

REPORT INFORMATION
  Report Type: Spontaneous
  Country: LB (occurrence: None)
  Receive Date: 20140212
  Receipt Date: 20140212
  Transmission Date: 20141002
  Serious: Yes (Life-Threatening, Hospitalization, Other)
  Sender: FDA-Public Use
  Company Number: 2014-LB-001422

PATIENT
  Age: 19 Year
  Sex: Female

DRUGS (2)
  1. ASPARAGINASE [Suspect]
  2. HEPARIN (HEPARIN) [Concomitant]

REACTIONS (3)
  - Pancreatitis acute [None]
  - Pancreatitis necrotising [None]
  - Vascular pseudoaneurysm [None]
